FAERS Safety Report 9435808 (Version 2)
Quarter: 2013Q3

REPORT INFORMATION
  Report Type: Spontaneous
  Country: US (occurrence: US)
  Receive Date: 20130801
  Receipt Date: 20130809
  Transmission Date: 20140515
  Serious: Yes (Other)
  Sender: FDA-Public Use
  Company Number: US-BAYER-2013-092284

PATIENT
  Age: 81 Year
  Sex: Male
  Weight: 97.51 kg

DRUGS (6)
  1. BAYER ASPIRIN REGIMEN ADULT LOW STRENGTH [Suspect]
     Indication: ANTICOAGULANT THERAPY
  2. BAYER GENUINE ASPIRIN ORIGINAL STRENGTH [Suspect]
     Indication: ANTICOAGULANT THERAPY
     Dosage: 1 DF, QD
     Route: 048
     Dates: start: 201307
  3. BAYER GENUINE ASPIRIN ORIGINAL STRENGTH [Suspect]
     Indication: ISCHAEMIC HEART DISEASE PROPHYLAXIS
  4. ATENOLOL [Concomitant]
  5. OMEPRAZOLE [Concomitant]
  6. VYTORIN [Concomitant]

REACTIONS (2)
  - Arrhythmia [None]
  - Off label use [None]
